FAERS Safety Report 14533084 (Version 1)
Quarter: 2018Q1

REPORT INFORMATION
  Report Type: Spontaneous
  Country: US (occurrence: US)
  Receive Date: 20180215
  Receipt Date: 20180215
  Transmission Date: 20180509
  Serious: Yes (Other)
  Sender: FDA-Public Use
  Company Number: US-ROCHE-2072868

PATIENT
  Age: 25 Year
  Sex: Male

DRUGS (1)
  1. XOLAIR [Suspect]
     Active Substance: OMALIZUMAB
     Indication: URTICARIA
     Dosage: CURRENT
     Route: 058
     Dates: start: 201709

REACTIONS (1)
  - Atrial flutter [Unknown]

NARRATIVE: CASE EVENT DATE: 20180208
